FAERS Safety Report 6829079-4 (Version None)
Quarter: 2010Q3

REPORT INFORMATION
  Report Type: 
  Country: None (occurrence: None)
  Receive Date: 20100709
  Receipt Date: 20070228
  Transmission Date: 20110219
  Serious: No
  Sender: FDA-Public Use
  Company Number: US-PFIZER INC-2007014969

PATIENT
  Sex: Female
  Weight: 97.52 kg

DRUGS (5)
  1. CHANTIX [Suspect]
     Indication: SMOKING CESSATION THERAPY
     Dates: start: 20070209, end: 20070221
  2. METHADONE [Concomitant]
  3. LISINOPRIL [Concomitant]
     Indication: BLOOD PRESSURE
  4. TRIAMTERENE [Concomitant]
     Indication: BLOOD PRESSURE
  5. CHONDROITIN/GLUCOSAMINE [Concomitant]
     Indication: ARTHRITIS

REACTIONS (4)
  - ABDOMINAL DISCOMFORT [None]
  - DRUG INEFFECTIVE [None]
  - NAUSEA [None]
  - VOMITING [None]
